FAERS Safety Report 11293978 (Version 1)
Quarter: 2015Q3

REPORT INFORMATION
  Report Type: Report from Study
  Country: US (occurrence: US)
  Receive Date: 20150722
  Receipt Date: 20150722
  Transmission Date: 20151125
  Serious: Yes (Death)
  Sender: FDA-Public Use
  Company Number: US-AMGEN-USASL2015045792

PATIENT
  Age: 78 Year
  Sex: Male
  Weight: 78.46 kg

DRUGS (1)
  1. KYPROLIS [Suspect]
     Active Substance: CARFILZOMIB
     Indication: PLASMA CELL MYELOMA
     Dosage: 54 MG, UNK
     Route: 042
     Dates: start: 20150323

REACTIONS (1)
  - Disease progression [Fatal]
